FAERS Safety Report 21545074 (Version 2)
Quarter: 2022Q4

REPORT INFORMATION
  Report Type: Spontaneous
  Country: US (occurrence: US)
  Receive Date: 20221103
  Receipt Date: 20221122
  Transmission Date: 20230113
  Serious: Yes (Life-Threatening, Hospitalization, Other)
  Sender: FDA-Public Use
  Company Number: US-MLMSERVICE-20221018-3865448-1

PATIENT
  Age: 17 Year
  Sex: Female

DRUGS (2)
  1. ACETAMINOPHEN [Suspect]
     Active Substance: ACETAMINOPHEN
     Indication: Product used for unknown indication
     Dosage: UNK (100-150 500 MG ACETAMINOPHEN (APAP) TABLETS)
     Route: 048
  2. SENNOSIDES [Concomitant]
     Active Substance: SENNOSIDES
     Indication: Laxative supportive care
     Dosage: UNK
     Route: 048

REACTIONS (5)
  - Drug level increased [Recovered/Resolved]
  - Apnoea [Recovered/Resolved]
  - Depressed level of consciousness [Recovered/Resolved]
  - Intentional overdose [Recovered/Resolved]
  - Abdominal pain [Recovered/Resolved]
